FAERS Safety Report 7379694-7 (Version None)
Quarter: 2011Q1

REPORT INFORMATION
  Report Type: 
  Country: None (occurrence: None)
  Receive Date: 20110329
  Receipt Date: 20110325
  Transmission Date: 20110831
  Serious: No
  Sender: FDA-Public Use
  Company Number: US-PFIZER INC-2011067464

PATIENT
  Sex: Male
  Weight: 74.83 kg

DRUGS (2)
  1. VIAGRA [Suspect]
     Indication: SLEEP DISORDER
  2. VIAGRA [Suspect]
     Indication: ERECTILE DYSFUNCTION
     Dosage: UNK
     Route: 048
     Dates: start: 20090101

REACTIONS (3)
  - JOINT STIFFNESS [None]
  - TENDON PAIN [None]
  - MYALGIA [None]
